FAERS Safety Report 4690449-4 (Version None)
Quarter: 2005Q2

REPORT INFORMATION
  Report Type: 
  Country: None (occurrence: None)
  Receive Date: 20050615
  Receipt Date: 20050606
  Transmission Date: 20051028
  Serious: Yes (Hospitalization)
  Sender: FDA-Public Use
  Company Number: 2005CG01053

PATIENT
  Age: 76 Year
  Sex: Female

DRUGS (19)
  1. NEXIUM [Suspect]
     Dates: start: 20040123, end: 20040221
  2. CLAFORAN [Suspect]
     Indication: MEDIASTINITIS
     Dates: start: 20040122, end: 20040215
  3. VANCOMYCINE DAKOTA PHARM [Suspect]
     Indication: MEDIASTINITIS
     Dates: start: 20040120, end: 20040215
  4. MIDAZOLAM HCL [Suspect]
     Dates: start: 20040123, end: 20040221
  5. GENTAMICINE DAKOTA PHARM [Suspect]
     Indication: MEDIASTINITIS
     Dates: start: 20040120, end: 20040201
  6. FENTANYL ABBOTT [Suspect]
     Dates: start: 20040123, end: 20040221
  7. OMEPRAZOLE [Concomitant]
     Dates: start: 20040107, end: 20040101
  8. SECTRAL [Concomitant]
     Dates: start: 20040107, end: 20040101
  9. DI-ANTALVIC [Concomitant]
     Dates: start: 20040107, end: 20040101
  10. ZINNAT [Concomitant]
     Dates: start: 20040107, end: 20040101
  11. PERFALGAN [Concomitant]
     Dates: start: 20040107, end: 20040101
  12. LOVENOX [Concomitant]
     Dates: start: 20040107, end: 20040101
  13. FUMAFER [Concomitant]
     Dates: start: 20040107, end: 20040101
  14. FOLDINE [Concomitant]
     Dates: start: 20040107, end: 20040101
  15. VASTEN [Concomitant]
     Dates: start: 20040107, end: 20040101
  16. HEPARIN [Concomitant]
     Dates: start: 20040123, end: 20040221
  17. KARDEGIC [Concomitant]
     Dates: start: 20030101, end: 20040221
  18. FUNGIZONE [Concomitant]
     Dates: start: 20040124, end: 20040214
  19. ACTRAPIDE [Concomitant]
     Dates: start: 20040124, end: 20040221

REACTIONS (1)
  - DRUG RASH WITH EOSINOPHILIA AND SYSTEMIC SYMPTOMS [None]
